FAERS Safety Report 20246441 (Version 1)
Quarter: 2021Q4

REPORT INFORMATION
  Report Type: Spontaneous
  Country: US (occurrence: US)
  Receive Date: 20211229
  Receipt Date: 20211229
  Transmission Date: 20220303
  Serious: No
  Sender: FDA-Public Use
  Company Number: US-AMGEN-USASP2021202408

PATIENT
  Age: 66 Year
  Sex: Female

DRUGS (4)
  1. REPATHA [Suspect]
     Active Substance: EVOLOCUMAB
     Indication: Type IIa hyperlipidaemia
     Dosage: 140 MILLIGRAM, Q2WK
     Route: 065
     Dates: start: 20210914
  2. REPATHA [Suspect]
     Active Substance: EVOLOCUMAB
     Indication: Low density lipoprotein increased
  3. REPATHA [Suspect]
     Active Substance: EVOLOCUMAB
     Indication: Drug intolerance
  4. COSENTYX [Concomitant]
     Active Substance: SECUKINUMAB
     Indication: Psoriasis

REACTIONS (5)
  - Pain in extremity [Unknown]
  - Pallor [Unknown]
  - Joint stiffness [Unknown]
  - Erythema [Unknown]
  - Product dose omission issue [Unknown]

NARRATIVE: CASE EVENT DATE: 20210101
